FAERS Safety Report 21562104 (Version 1)
Quarter: 2022Q4

REPORT INFORMATION
  Report Type: Spontaneous
  Country: US (occurrence: None)
  Receive Date: 20221102
  Receipt Date: 20221102
  Transmission Date: 20230113
  Serious: Yes (Hospitalization)
  Sender: FDA-Public Use
  Company Number: None

PATIENT
  Age: 75 Year
  Sex: Male

DRUGS (1)
  1. LIDOCAINE [Suspect]
     Active Substance: LIDOCAINE
     Indication: Ingrowing nail
     Dosage: FREQUENCY : AS NEEDED;?OTHER ROUTE : HALLUX BLOCK TOENAIL REMOVAL;?
     Route: 050

REACTIONS (3)
  - Seizure [None]
  - Hyperhidrosis [None]
  - Pallor [None]

NARRATIVE: CASE EVENT DATE: 20221027
